FAERS Safety Report 8917147 (Version 3)
Quarter: 2013Q4

REPORT INFORMATION
  Report Type: Report from Study
  Country: US (occurrence: US)
  Receive Date: 20121120
  Receipt Date: 20131226
  Transmission Date: 20140711
  Serious: Yes (Other)
  Sender: FDA-Public Use
  Company Number: PHEH2012US000888

PATIENT
  Age: 11 Year
  Sex: Female

DRUGS (7)
  1. AFINITOR (RAD) [Suspect]
     Indication: TUBEROUS SCLEROSIS
     Dosage: 10 MG, DAILY
     Route: 048
     Dates: start: 20090501
  2. TOPAMAX [Concomitant]
  3. FELBAMATE [Concomitant]
     Indication: CONVULSION
     Dates: start: 20120525
  4. CLOBAZAM [Concomitant]
  5. RUFINAMIDE [Concomitant]
  6. BANZIL [Concomitant]
  7. ONFI [Concomitant]

REACTIONS (4)
  - Clonic convulsion [Not Recovered/Not Resolved]
  - Tonic convulsion [Not Recovered/Not Resolved]
  - Fatigue [Unknown]
  - Drug level below therapeutic [Unknown]
